FAERS Safety Report 26044207 (Version 2)
Quarter: 2025Q4

REPORT INFORMATION
  Report Type: Report from Study
  Country: US (occurrence: US)
  Receive Date: 20251114
  Receipt Date: 20251211
  Transmission Date: 20260118
  Serious: Yes (Other)
  Sender: ABBVIE
  Company Number: US-ABBVIE-6541238

PATIENT
  Age: 39 Year
  Sex: Female

DRUGS (1)
  1. RINVOQ [Suspect]
     Active Substance: UPADACITINIB
     Indication: Colitis ulcerative
     Dosage: LAST ADMIN DATE: 2025
     Route: 048
     Dates: start: 20250905

REACTIONS (4)
  - Systemic lupus erythematosus [Unknown]
  - Colitis ulcerative [Not Recovered/Not Resolved]
  - Arthralgia [Not Recovered/Not Resolved]
  - Dyschezia [Unknown]

NARRATIVE: CASE EVENT DATE: 20250101
